FAERS Safety Report 15877801 (Version 1)
Quarter: 2019Q1

REPORT INFORMATION
  Report Type: Spontaneous
  Country: US (occurrence: US)
  Receive Date: 20190128
  Receipt Date: 20190128
  Transmission Date: 20190417
  Serious: Yes (Other)
  Sender: FDA-Public Use
  Company Number: US-ROCHE-2251641

PATIENT
  Sex: Female

DRUGS (1)
  1. LUCENTIS [Suspect]
     Active Substance: RANIBIZUMAB
     Indication: MACULAR DEGENERATION
     Route: 065
     Dates: start: 20150508, end: 20180608

REACTIONS (4)
  - Drug ineffective [Unknown]
  - Eye infection [Recovered/Resolved]
  - Eye disorder [Unknown]
  - Blindness [Recovered/Resolved with Sequelae]

NARRATIVE: CASE EVENT DATE: 2017
